FAERS Safety Report 5997501-1 (Version None)
Quarter: 2008Q4

REPORT INFORMATION
  Report Type: 
  Country: None (occurrence: None)
  Receive Date: 20081212
  Receipt Date: 20081114
  Transmission Date: 20090506
  Serious: No
  Sender: FDA-Public Use
  Company Number: US-ABBOTT-08P-163-0487832-00

PATIENT
  Sex: Female

DRUGS (1)
  1. HUMIRA [Suspect]
     Indication: CROHN'S DISEASE
     Route: 058
     Dates: start: 20071217

REACTIONS (17)
  - ADVERSE DRUG REACTION [None]
  - ASTHENIA [None]
  - DERMATITIS ACNEIFORM [None]
  - DIARRHOEA [None]
  - FATIGUE [None]
  - FEELING ABNORMAL [None]
  - INFLUENZA LIKE ILLNESS [None]
  - MALAISE [None]
  - MOBILITY DECREASED [None]
  - NAUSEA [None]
  - PAIN [None]
  - PAIN IN EXTREMITY [None]
  - PRURITUS [None]
  - PYREXIA [None]
  - RASH MACULAR [None]
  - THIRST [None]
  - WEIGHT INCREASED [None]
